FAERS Safety Report 5481952-8 (Version None)
Quarter: 2007Q4

REPORT INFORMATION
  Report Type: 
  Country: None (occurrence: None)
  Receive Date: 20071005
  Receipt Date: 20071001
  Transmission Date: 20080405
  Serious: Yes (Hospitalization)
  Sender: FDA-Public Use
  Company Number: 163-21880-07081653

PATIENT
  Age: 67 Year
  Sex: Male

DRUGS (1)
  1. REVLIMID [Suspect]
     Indication: MYELODYSPLASTIC SYNDROME
     Dosage: 10MG, DAILY FOR 21 DAYS, ORAL
     Route: 048
     Dates: start: 20061101

REACTIONS (2)
  - APPENDICITIS PERFORATED [None]
  - COLONIC OBSTRUCTION [None]
